FAERS Safety Report 24918551 (Version 3)
Quarter: 2025Q2

REPORT INFORMATION
  Report Type: Spontaneous
  Country: CA (occurrence: CA)
  Receive Date: 20250203
  Receipt Date: 20250407
  Transmission Date: 20250717
  Serious: Yes (Death, Life-Threatening, Hospitalization, Other)
  Sender: PFIZER
  Company Number: CA-PFIZER INC-202500019295

PATIENT
  Age: 70 Year
  Sex: Male
  Weight: 131.36 kg

DRUGS (14)
  1. VYNDAMAX [Suspect]
     Active Substance: TAFAMIDIS
     Indication: Cardiac amyloidosis
     Dosage: 61 MG, 1X/DAY
     Route: 048
     Dates: start: 20241204, end: 20250205
  2. ATORVASTATIN [Concomitant]
     Active Substance: ATORVASTATIN
  3. ALLOPURINOL [Concomitant]
     Active Substance: ALLOPURINOL
  4. AMIODARONE [Concomitant]
     Active Substance: AMIODARONE
     Dosage: 200, DAILY
  5. CITALOPRAM [Concomitant]
     Active Substance: CITALOPRAM
     Dosage: 20, DAILY
  6. EZETIMIBE [Concomitant]
     Active Substance: EZETIMIBE
     Dosage: 10, DAILY
  7. FLUTICASONE [Concomitant]
     Active Substance: FLUTICASONE
     Dosage: 1X/DAY, T PUFF
  8. INSULIN ASPART [Concomitant]
     Active Substance: INSULIN ASPART
  9. LEVOTHYROXINE [Concomitant]
     Active Substance: LEVOTHYROXINE
     Dosage: 112 UG, 1X/DAY
  10. METOLAZONE [Concomitant]
     Active Substance: METOLAZONE
     Dosage: 5 MG, 1X/DAY
  11. MAGNESIUM OXIDE [Concomitant]
     Active Substance: MAGNESIUM OXIDE
  12. POTASSIUM [Concomitant]
     Active Substance: POTASSIUM
     Dosage: 10 MMOL, 4X/DAY
  13. SENOKOT [Concomitant]
     Active Substance: SENNOSIDES
  14. TYLENOL [Concomitant]
     Active Substance: ACETAMINOPHEN
     Dosage: 650, 3X/DAY

REACTIONS (5)
  - Shock haemorrhagic [Fatal]
  - Cardiogenic shock [Fatal]
  - Cough [Unknown]
  - Fluid retention [Unknown]
  - Abdominal wall haemorrhage [Unknown]

NARRATIVE: CASE EVENT DATE: 20250101
